FAERS Safety Report 26085119 (Version 1)
Quarter: 2025Q4

REPORT INFORMATION
  Report Type: Spontaneous
  Country: US (occurrence: US)
  Receive Date: 20251125
  Receipt Date: 20251125
  Transmission Date: 20260117
  Serious: Yes (Death, Congenital Anomaly)
  Sender: Kenvue
  Company Number: US-KENVUE-20251106955

PATIENT

DRUGS (1)
  1. TYLENOL [Suspect]
     Active Substance: ACETAMINOPHEN
     Indication: Migraine
     Dosage: UNK

REACTIONS (2)
  - Foetal exposure during pregnancy [Fatal]
  - Congenital anomaly [Fatal]
